FAERS Safety Report 5117540-2 (Version None)
Quarter: 2006Q3

REPORT INFORMATION
  Report Type: 
  Country: None (occurrence: None)
  Receive Date: 20060929
  Receipt Date: 20060608
  Transmission Date: 20061208
  Serious: Yes (Hospitalization, Other)
  Sender: FDA-Public Use
  Company Number: US-BAYER-200614026BWH

PATIENT
  Age: 77 Year
  Sex: Male

DRUGS (7)
  1. NEXAVAR [Suspect]
     Indication: RENAL CELL CARCINOMA STAGE UNSPECIFIED
     Dosage: TOTAL DAILY DOSE: 800 MG  UNIT DOSE: 200 MG
     Route: 048
  2. NEXAVAR [Suspect]
     Dosage: TOTAL DAILY DOSE: 800 MG  UNIT DOSE: 200 MG
     Route: 048
     Dates: start: 20060711, end: 20060824
  3. NEXAVAR [Suspect]
     Dosage: AS USED: 200/400 MG  UNIT DOSE: 200 MG
     Route: 048
     Dates: start: 20060627, end: 20060711
  4. NEXAVAR [Suspect]
     Dosage: TOTAL DAILY DOSE: 400 MG  UNIT DOSE: 200 MG
     Route: 048
     Dates: start: 20060101, end: 20060627
  5. NEXAVAR [Suspect]
     Dosage: TOTAL DAILY DOSE: 100 MG  UNIT DOSE: 200 MG
     Route: 048
     Dates: start: 20060530, end: 20060101
  6. NEXAVAR [Suspect]
     Dosage: TOTAL DAILY DOSE: 800 MG  UNIT DOSE: 200 MG
     Route: 048
     Dates: start: 20060501, end: 20060515
  7. NEXAVAR [Suspect]
     Dosage: TOTAL DAILY DOSE: 400 MG  UNIT DOSE: 200 MG
     Route: 048
     Dates: start: 20060423, end: 20060501

REACTIONS (15)
  - ABDOMINAL PAIN [None]
  - ASTHENIA [None]
  - BLISTER [None]
  - DEHYDRATION [None]
  - DIARRHOEA [None]
  - DYSPHORIA [None]
  - DYSPNOEA [None]
  - FATIGUE [None]
  - FLANK PAIN [None]
  - HYPOKALAEMIA [None]
  - HYPOMAGNESAEMIA [None]
  - NAUSEA [None]
  - PNEUMONITIS [None]
  - RASH MACULAR [None]
  - VOMITING [None]
